FAERS Safety Report 14783381 (Version 5)
Quarter: 2018Q4

REPORT INFORMATION
  Report Type: Report from Study
  Country: CA (occurrence: CA)
  Receive Date: 20180420
  Receipt Date: 20181115
  Transmission Date: 20190204
  Serious: Yes (Other)
  Sender: FDA-Public Use
  Company Number: CA-ASTELLAS-2018US018448

PATIENT
  Age: 37 Year
  Sex: Female

DRUGS (2)
  1. TACROLIMUS. [Suspect]
     Active Substance: TACROLIMUS
     Route: 048
  2. TACROLIMUS. [Suspect]
     Active Substance: TACROLIMUS
     Indication: LIVER TRANSPLANT
     Route: 048
     Dates: start: 1999

REACTIONS (6)
  - Renal impairment [Unknown]
  - Exposure during pregnancy [Unknown]
  - Nephropathy toxic [Recovering/Resolving]
  - Pre-eclampsia [Unknown]
  - Chronic kidney disease [Recovering/Resolving]
  - Stillbirth [Unknown]
